FAERS Safety Report 9564763 (Version 2)
Quarter: 2013Q3

REPORT INFORMATION
  Report Type: Report from Study
  Country: US (occurrence: US)
  Receive Date: 20130930
  Receipt Date: 20130930
  Transmission Date: 20140515
  Serious: Yes (Hospitalization)
  Sender: FDA-Public Use
  Company Number: US-JNJFOC-NSADSS2002027156

PATIENT
  Age: 2 Year
  Sex: Male
  Weight: 11 kg

DRUGS (28)
  1. CISAPRIDE [Suspect]
     Route: 050
  2. CISAPRIDE [Suspect]
     Indication: OBSTRUCTION
     Route: 050
     Dates: start: 20020714
  3. FER-IN-SOL [Concomitant]
     Indication: ANAEMIA
     Route: 065
  4. ACIDOPHILIS [Concomitant]
     Route: 065
  5. BENADRYL [Concomitant]
     Indication: PRURITUS
     Dosage: DOSE: 10.0 (UNITS UNSPECIFIED)??DOSAGE: AS NECESSARY
     Route: 041
  6. ALBUTEROL [Concomitant]
     Indication: WHEEZING
     Route: 055
     Dates: start: 20020101
  7. ALBUTEROL [Concomitant]
     Indication: WHEEZING
     Dosage: AS NECESSARY
     Route: 065
     Dates: start: 20011022, end: 20011031
  8. MYLICON [Concomitant]
     Route: 065
     Dates: end: 20020123
  9. PULMICORT [Concomitant]
     Indication: BRONCHIAL HYPERREACTIVITY
     Route: 065
     Dates: start: 20020114
  10. PULMICORT [Concomitant]
     Indication: BRONCHIAL HYPERREACTIVITY
     Route: 065
  11. CIPROFLOXACIN [Concomitant]
     Indication: CONJUNCTIVITIS
     Route: 047
     Dates: start: 20020401, end: 20020404
  12. FLAGYL [Concomitant]
     Indication: DIARRHOEA
     Route: 065
     Dates: start: 20020418, end: 20020424
  13. FLAGYL [Concomitant]
     Indication: DIARRHOEA
     Route: 065
     Dates: start: 20020114, end: 20020121
  14. BACTRIM [Concomitant]
     Indication: DIARRHOEA
     Route: 065
     Dates: start: 20020502, end: 20020508
  15. PEDIAPRED [Concomitant]
     Indication: BRONCHIAL HYPERREACTIVITY
     Route: 065
     Dates: start: 20020216, end: 20020220
  16. LOTRIMIN [Concomitant]
     Indication: RASH
     Route: 003
     Dates: start: 20020301, end: 20020327
  17. NYSTATIN [Concomitant]
     Indication: RASH
     Route: 065
     Dates: start: 20020114, end: 20020225
  18. NYSTATIN [Concomitant]
     Indication: RASH
     Route: 065
     Dates: start: 20011002, end: 20011004
  19. NYSTATIN [Concomitant]
     Indication: RASH
     Route: 065
     Dates: start: 20020301, end: 20020327
  20. VANCOMYCIN [Concomitant]
     Indication: INFECTION
     Route: 041
     Dates: start: 20020304, end: 20020314
  21. CEFUROXIME [Concomitant]
     Indication: PYREXIA
     Dosage: DOSE: 300.0 (UNITS UNSPECIFIED)
     Route: 041
     Dates: start: 20020317, end: 20020327
  22. PREDNISONE [Concomitant]
     Indication: PYREXIA
     Route: 065
     Dates: start: 20011022, end: 20011027
  23. PREDNISONE [Concomitant]
     Indication: PYREXIA
     Route: 065
     Dates: start: 20020317, end: 20020323
  24. KUZYME [Concomitant]
     Indication: DIARRHOEA
     Route: 065
     Dates: start: 20020129, end: 20020214
  25. GENTAMICIN [Concomitant]
     Indication: BACTERIAL INFECTION
     Route: 065
     Dates: start: 20020214, end: 20020221
  26. REGLAN [Concomitant]
     Indication: UNEVALUABLE EVENT
     Route: 065
     Dates: start: 20010718, end: 20010927
  27. REGLAN [Concomitant]
     Indication: UNEVALUABLE EVENT
     Route: 065
     Dates: end: 20010713
  28. PRILOSEC [Concomitant]
     Indication: GASTROOESOPHAGEAL REFLUX DISEASE
     Route: 065
     Dates: start: 20020107

REACTIONS (3)
  - Feeding disorder [Recovered/Resolved]
  - Pruritus [Unknown]
  - Lethargy [Unknown]
